FAERS Safety Report 5697220-5 (Version None)
Quarter: 2008Q2

REPORT INFORMATION
  Report Type: 
  Country: None (occurrence: None)
  Receive Date: 20080408
  Receipt Date: 20070713
  Transmission Date: 20081010
  Serious: No
  Sender: FDA-Public Use
  Company Number: US-BAYER-US-2007-026184

PATIENT
  Age: 37 Year
  Sex: Female
  Weight: 65 kg

DRUGS (2)
  1. YASMIN [Suspect]
     Indication: ORAL CONTRACEPTION
     Route: 048
     Dates: start: 20070101, end: 20070101
  2. PROZAC [Concomitant]
     Dosage: UNIT DOSE: 20 MG

REACTIONS (5)
  - DIZZINESS [None]
  - PALPITATIONS [None]
  - RASH [None]
  - THIRST [None]
  - WEIGHT INCREASED [None]
